FAERS Safety Report 5448031-7 (Version None)
Quarter: 2007Q3

REPORT INFORMATION
  Report Type: 
  Country: None (occurrence: None)
  Receive Date: 20070910
  Receipt Date: 20070829
  Transmission Date: 20080115
  Serious: Yes (Other)
  Sender: FDA-Public Use
  Company Number: US-PFIZER INC-2007073048

PATIENT
  Sex: Female

DRUGS (1)
  1. LYRICA [Suspect]

REACTIONS (2)
  - BLISTER [None]
  - SCAR [None]
